FAERS Safety Report 4804831-5 (Version None)
Quarter: 2005Q4

REPORT INFORMATION
  Report Type: 
  Country: None (occurrence: None)
  Receive Date: 20051017
  Receipt Date: 20051007
  Transmission Date: 20060501
  Serious: Yes (Hospitalization, Other)
  Sender: FDA-Public Use
  Company Number: US-2005-020791

PATIENT
  Age: 50 Year
  Sex: Male
  Weight: 88.8 kg

DRUGS (13)
  1. CAMPATH 30/ MABCAMPATH(CAMPATH 30 1/ML)(ALEMTUZUMAB) VIAL [Suspect]
     Indication: PROPHYLAXIS AGAINST TRANSPLANT REJECTION
     Dosage: 30 MG, 3 DOSES, INTRAVENOUS
     Route: 042
     Dates: start: 20050617, end: 20050706
  2. CELLCEPT [Concomitant]
  3. PROGRAF [Concomitant]
  4. VALCYTE [Concomitant]
  5. DAPSONE [Concomitant]
  6. BACTRIM [Concomitant]
  7. PRILOSEC [Concomitant]
  8. MYCELEX [Concomitant]
  9. MAGNESIUM OXIDE (MAGNESIUM OXIDE) [Concomitant]
  10. CALCIUM CARBONATE [Concomitant]
  11. LEVOTHYROXINE SODIUM [Concomitant]
  12. ACETYLSALICYLIC ACID (ASA) (ACETYLSALICYLIC ACID) [Concomitant]
  13. COLACE (DOCUSATE SODIUM) [Concomitant]

REACTIONS (4)
  - CONVULSION [None]
  - KIDNEY TRANSPLANT REJECTION [None]
  - LEUKOPENIA [None]
  - WEST NILE VIRAL INFECTION [None]
